FAERS Safety Report 4286125-2 (Version None)
Quarter: 2004Q1

REPORT INFORMATION
  Report Type: 
  Country: None (occurrence: None)
  Receive Date: 20040203
  Receipt Date: 20040121
  Transmission Date: 20041129
  Serious: Yes (Hospitalization)
  Sender: FDA-Public Use
  Company Number: 12483574

PATIENT
  Age: 47 Year
  Sex: Male

DRUGS (4)
  1. DIDANOSINE [Suspect]
  2. ABACAVIR (ABACAVIR SULFATE) [Suspect]
  3. ZIDOVUDINE [Suspect]
  4. FLUCONAZOLE [Suspect]
     Indication: PROPHYLAXIS
     Dosage: 200 MILLIGRAM, 1/1 DAY ORAL
     Route: 048

REACTIONS (10)
  - COCCIDIOIDOMYCOSIS [None]
  - COUGH [None]
  - DISEASE RECURRENCE [None]
  - DYSPNOEA [None]
  - INFLAMMATION [None]
  - LYMPH NODE PAIN [None]
  - LYMPHADENOPATHY [None]
  - PLEURITIC PAIN [None]
  - PYREXIA [None]
  - RENAL IMPAIRMENT [None]
